FAERS Safety Report 4454462-4 (Version None)
Quarter: 2004Q3

REPORT INFORMATION
  Report Type: 
  Country: None (occurrence: None)
  Receive Date: 20040921
  Receipt Date: 20040729
  Transmission Date: 20050211
  Serious: No
  Sender: FDA-Public Use
  Company Number: 200412519JP

PATIENT
  Age: 50 Year
  Sex: Female
  Weight: 53 kg

DRUGS (4)
  1. ALLEGRA [Suspect]
     Indication: RHINITIS ALLERGIC
     Route: 048
     Dates: start: 20040209, end: 20040620
  2. THEO-DUR [Concomitant]
     Indication: ASTHMA
     Route: 048
  3. ATOCK [Concomitant]
     Indication: ASTHMA
     Route: 048
  4. MEPTIN [Concomitant]
     Indication: ASTHMA
     Route: 048

REACTIONS (2)
  - INSOMNIA [None]
  - THIRST [None]
